FAERS Safety Report 10177259 (Version 1)
Quarter: 2014Q2

REPORT INFORMATION
  Report Type: Spontaneous
  Country: US (occurrence: US)
  Receive Date: 20140516
  Receipt Date: 20140516
  Transmission Date: 20141212
  Serious: Yes (Death)
  Sender: FDA-Public Use
  Company Number: US-GLAXOSMITHKLINE-A1073171A

PATIENT
  Age: 64 Year
  Sex: Male

DRUGS (3)
  1. SORIATANE [Suspect]
     Indication: PRODUCT USED FOR UNKNOWN INDICATION
     Route: 065
  2. VENTOLIN [Suspect]
     Indication: ASTHMA
     Route: 055
  3. BLOOD PRESSURE MEDICATION [Concomitant]

REACTIONS (1)
  - Death [Fatal]
